FAERS Safety Report 22344512 (Version 2)
Quarter: 2023Q2

REPORT INFORMATION
  Report Type: Report from Study
  Country: CN (occurrence: CN)
  Receive Date: 20230519
  Receipt Date: 20230621
  Transmission Date: 20230722
  Serious: Yes (Hospitalization, Other)
  Sender: FDA-Public Use
  Company Number: CN-JNJFOC-20220534750

PATIENT
  Age: 62 Year
  Sex: Male
  Weight: 60 kg

DRUGS (16)
  1. BORTEZOMIB [Suspect]
     Active Substance: BORTEZOMIB
     Indication: Plasma cell myeloma
     Dosage: UNK
     Route: 065
  2. DEXAMETHASONE [Suspect]
     Active Substance: DEXAMETHASONE
     Indication: Plasma cell myeloma
     Dosage: UNK
     Route: 065
  3. DARATUMUMAB [Suspect]
     Active Substance: DARATUMUMAB
     Indication: Plasma cell myeloma
     Dosage: 100 MILLIGRAM
     Route: 065
     Dates: start: 20211026, end: 20211026
  4. DARATUMUMAB [Suspect]
     Active Substance: DARATUMUMAB
     Dosage: 800 MILLIGRAM
     Route: 065
     Dates: start: 20211026, end: 20211026
  5. DARATUMUMAB [Suspect]
     Active Substance: DARATUMUMAB
     Dosage: 500 MILLIGRAM
     Route: 065
     Dates: start: 20211106, end: 20211106
  6. DARATUMUMAB [Suspect]
     Active Substance: DARATUMUMAB
     Dosage: 1000 MILLIGRAM
     Route: 065
     Dates: start: 20211118, end: 20211118
  7. DARATUMUMAB [Suspect]
     Active Substance: DARATUMUMAB
     Dosage: 1000 MILLIGRAM
     Route: 065
     Dates: start: 20211129, end: 20211129
  8. DARATUMUMAB [Suspect]
     Active Substance: DARATUMUMAB
     Dosage: 1000 MILLIGRAM
     Route: 065
     Dates: start: 20211214, end: 20211214
  9. DARATUMUMAB [Suspect]
     Active Substance: DARATUMUMAB
     Dosage: 1000 MILLIGRAM
     Route: 065
     Dates: start: 20220105, end: 20220105
  10. DARATUMUMAB [Suspect]
     Active Substance: DARATUMUMAB
     Dosage: 1000 MILLIGRAM
     Route: 065
     Dates: start: 20220223, end: 20220223
  11. DARATUMUMAB [Suspect]
     Active Substance: DARATUMUMAB
     Dosage: 1000 MILLIGRAM
     Route: 065
     Dates: start: 20220315, end: 20220315
  12. DARATUMUMAB [Suspect]
     Active Substance: DARATUMUMAB
     Dosage: 1000 MILLIGRAM
     Route: 065
     Dates: start: 20220401, end: 20220401
  13. DARATUMUMAB [Suspect]
     Active Substance: DARATUMUMAB
     Dosage: 1000 MILLIGRAM
     Route: 065
     Dates: start: 20220418, end: 20220418
  14. DARATUMUMAB [Suspect]
     Active Substance: DARATUMUMAB
     Dosage: 1000 MILLIGRAM
     Route: 065
     Dates: start: 20220517, end: 20220517
  15. DARATUMUMAB [Suspect]
     Active Substance: DARATUMUMAB
     Dosage: 1000 MILLIGRAM
     Route: 065
     Dates: start: 20220624, end: 20220624
  16. DARATUMUMAB [Suspect]
     Active Substance: DARATUMUMAB
     Dosage: 1000 MILLIGRAM
     Route: 065
     Dates: start: 20220718, end: 20220718

REACTIONS (3)
  - Pneumonia pneumococcal [Recovered/Resolved]
  - Leukopenia [Recovered/Resolved]
  - Neutrophil count decreased [Recovered/Resolved]

NARRATIVE: CASE EVENT DATE: 20220105
